FAERS Safety Report 5232942-1 (Version None)
Quarter: 2007Q1

REPORT INFORMATION
  Report Type: 
  Country: None (occurrence: None)
  Receive Date: 20061201
  Receipt Date: 20060921
  Transmission Date: 20070707
  Serious: No
  Sender: FDA-Public Use
  Company Number: 2006PV021735

PATIENT
  Age: 51 Year
  Sex: Female
  Weight: 114.3065 kg

DRUGS (2)
  1. BYETTA [Suspect]
     Indication: DIABETES MELLITUS NON-INSULIN-DEPENDENT
     Dosage: SEE IMAGE
     Route: 058
     Dates: start: 20060814, end: 20060830
  2. BYETTA [Suspect]
     Indication: DIABETES MELLITUS NON-INSULIN-DEPENDENT
     Dosage: SEE IMAGE
     Route: 058
     Dates: start: 20060831

REACTIONS (4)
  - DECREASED APPETITE [None]
  - INJECTION SITE URTICARIA [None]
  - PRE-EXISTING CONDITION IMPROVED [None]
  - WEIGHT DECREASED [None]
